FAERS Safety Report 8053064-0 (Version None)
Quarter: 2012Q1

REPORT INFORMATION
  Report Type: 
  Country: None (occurrence: None)
  Receive Date: 20120118
  Receipt Date: 20120108
  Transmission Date: 20120608
  Serious: Yes (Other)
  Sender: FDA-Public Use
  Company Number: FR-VERTEX PHARMACEUTICALS INC.-000000000000000092

PATIENT
  Sex: Female

DRUGS (3)
  1. RIBAVIRINE [Concomitant]
     Indication: HEPATITIS C
  2. PEG-INTRON [Concomitant]
     Indication: HEPATITIS C
  3. INCIVO (TELAPREVIR) [Suspect]
     Indication: HEPATITIS C
     Dosage: DOSAGE FORM: TABLET
     Route: 048

REACTIONS (2)
  - TRANSAMINASES INCREASED [None]
  - CELL DEATH [None]
